FAERS Safety Report 8175337-3 (Version None)
Quarter: 2012Q1

REPORT INFORMATION
  Report Type: 
  Country: None (occurrence: None)
  Receive Date: 20120229
  Receipt Date: 20120228
  Transmission Date: 20120608
  Serious: Yes (Other)
  Sender: FDA-Public Use
  Company Number: PHHY2009FR23935

PATIENT
  Age: 34 Year
  Sex: Female

DRUGS (29)
  1. VENOFER [Suspect]
     Dosage: 100 MG, QW2
     Route: 042
     Dates: start: 20081215, end: 20081217
  2. NEORAL [Suspect]
     Dosage: 50 MG, BID
     Route: 048
     Dates: start: 20081022, end: 20081105
  3. KAYEXALATE [Suspect]
     Dosage: 2 DF, QD
     Route: 048
     Dates: start: 20080805, end: 20081115
  4. MUCOMYST [Suspect]
     Dosage: 200 MG, BID
     Route: 048
     Dates: start: 20081107, end: 20081110
  5. ACETYLCYSTEINE [Suspect]
     Dosage: 2 DF, QD
     Route: 045
     Dates: start: 20081107, end: 20081110
  6. CEFPODOXIME PROXETIL [Suspect]
     Dosage: 100 MG, BID
     Route: 048
     Dates: start: 20081107, end: 20081117
  7. ERYTHROMYCIN [Suspect]
     Dosage: 1 DF, BID
     Route: 061
     Dates: start: 20080829, end: 20080916
  8. LASIX [Suspect]
     Dosage: 500 MG, BID
     Route: 048
     Dates: start: 20080613, end: 20081215
  9. ESOMEPRAZOLE SODIUM [Suspect]
     Dosage: 40 MG, QD
     Route: 048
     Dates: start: 20080613, end: 20080821
  10. IMURAN [Suspect]
     Dosage: 50 MG, BID
     Route: 048
     Dates: start: 20080822, end: 20080905
  11. ATARAX [Suspect]
     Dosage: 25 MG, QD
     Route: 048
     Dates: start: 20080818, end: 20081217
  12. RUBOZINC [Suspect]
     Dosage: 15 MG, QD
     Route: 048
     Dates: start: 20080829, end: 20080916
  13. NEORAL [Suspect]
     Indication: RENAL TRANSPLANT
     Dosage: 100 MG, BID
     Route: 048
     Dates: start: 20080801, end: 20081021
  14. NEORAL [Suspect]
     Dosage: 25 MG, BID
     Route: 048
     Dates: start: 20081106, end: 20081217
  15. IMURAN [Suspect]
     Dosage: 75 MG, BID
     Route: 048
     Dates: start: 20080613, end: 20080821
  16. KAYEXALATE [Suspect]
     Dosage: 1 DF, QD
     Route: 048
     Dates: start: 20080613, end: 20080804
  17. VENOFER [Suspect]
     Dosage: 100 MG, QW3
     Route: 042
     Dates: start: 20081017, end: 20081214
  18. RENAGEL [Suspect]
     Dosage: 800 MG, TID
     Route: 048
     Dates: start: 20080828, end: 20081215
  19. PIVALONE [Suspect]
     Dosage: 2 DROPS BID
     Route: 045
     Dates: start: 20081031, end: 20081107
  20. FOLIC ACID [Suspect]
     Dosage: 5 MG, BID
     Route: 048
     Dates: start: 20081008, end: 20081217
  21. ESOMEPRAZOLE SODIUM [Suspect]
     Dosage: 20 MG, QD
     Route: 048
     Dates: start: 20080822, end: 20081217
  22. ARANESP [Suspect]
     Dosage: 80 UG, QW2
     Route: 058
     Dates: start: 20080929, end: 20081217
  23. IMURAN [Suspect]
     Dosage: 25 MG, QD
     Route: 048
     Dates: start: 20080906, end: 20080916
  24. AMLODIPINE BESYLATE [Suspect]
     Dosage: 5 MG, QD
     Route: 048
     Dates: start: 20080620, end: 20080916
  25. ISOTRETINOIN [Suspect]
     Dosage: 1 DF, BID
     Route: 061
     Dates: start: 20080829, end: 20080916
  26. AMLODIPINE BESYLATE [Suspect]
     Dosage: 10 MG, QD
     Route: 048
     Dates: start: 20080917, end: 20081215
  27. UN-ALFA [Suspect]
     Dosage: 0.5 UG, QD
     Route: 048
     Dates: start: 20080704, end: 20081017
  28. ARANESP [Suspect]
     Dosage: 60 UG, QW
     Route: 058
     Dates: start: 20080727, end: 20080928
  29. VENOFER [Suspect]
     Dosage: 100 MG, QW2
     Route: 042
     Dates: start: 20080613, end: 20081016

REACTIONS (3)
  - RENAL GRAFT LOSS [None]
  - FOETAL EXPOSURE DURING PREGNANCY [None]
  - STILLBIRTH [None]
